FAERS Safety Report 9140176 (Version 1)
Quarter: 2013Q1

REPORT INFORMATION
  Report Type: Spontaneous
  Country: FR (occurrence: FR)
  Receive Date: 20130305
  Receipt Date: 20130305
  Transmission Date: 20140127
  Serious: Yes (Hospitalization)
  Sender: FDA-Public Use
  Company Number: FR-JNJFOC-20130214877

PATIENT
  Age: 83 Year
  Sex: Male

DRUGS (10)
  1. XARELTO [Suspect]
     Indication: PRODUCT USED FOR UNKNOWN INDICATION
     Route: 048
     Dates: start: 20130119, end: 20130123
  2. LOVENOX [Suspect]
     Indication: PRODUCT USED FOR UNKNOWN INDICATION
     Dosage: 4000 IU
     Route: 058
     Dates: start: 20130115, end: 20130121
  3. KARDEGIC [Suspect]
     Indication: PRODUCT USED FOR UNKNOWN INDICATION
     Route: 048
     Dates: start: 20130108, end: 20130121
  4. INEXIUM [Concomitant]
     Route: 048
     Dates: start: 20130108
  5. XATRAL [Concomitant]
     Route: 048
     Dates: start: 20130108
  6. FLECAINE [Concomitant]
     Route: 048
     Dates: start: 20130108
  7. DOLIPRANE [Concomitant]
     Route: 048
     Dates: start: 20130108
  8. TAHOR [Concomitant]
     Route: 048
     Dates: start: 20130109
  9. PROZAC [Concomitant]
     Route: 048
     Dates: start: 20130118
  10. CALCIPARINE [Concomitant]
     Dosage: 12500 IU/0.5 ML
     Route: 058
     Dates: start: 20130108, end: 20130115

REACTIONS (2)
  - Cerebral haemorrhage [Recovering/Resolving]
  - Malaise [Recovering/Resolving]
